FAERS Safety Report 10227683 (Version 2)
Quarter: 2014Q4

REPORT INFORMATION
  Report Type: Report from Study
  Country: BR (occurrence: BR)
  Receive Date: 20140610
  Receipt Date: 20141104
  Transmission Date: 20150528
  Serious: Yes (Other)
  Sender: FDA-Public Use
  Company Number: PHHY2014BR069147

PATIENT
  Age: 48 Year
  Sex: Female
  Weight: 49 kg

DRUGS (10)
  1. ZOTEON PODHALER [Suspect]
     Active Substance: TOBRAMYCIN
     Indication: CYSTIC FIBROSIS
     Dosage: 4 DF (4 CAPSULES MORNING AND NIGHT)
     Route: 065
     Dates: start: 201403
  2. PANCREATIC ENZYMES [Concomitant]
     Active Substance: UNSPECIFIED INGREDIENT
     Indication: CYSTIC FIBROSIS
     Dosage: 2 DF (PER MEAL)
     Route: 065
  3. VANNAIR [Concomitant]
     Active Substance: BUDESONIDE\FORMOTEROL FUMARATE DIHYDRATE
     Indication: DYSPNOEA
     Dosage: 2 DF, BID (2 BLOWS EACH 12 HOURS)
     Route: 055
  4. BUDESONIDE. [Concomitant]
     Active Substance: BUDESONIDE
     Indication: DYSPNOEA
     Dosage: 1 DF, BID (ONE CAPSULES EACH 12 HOUR)
     Route: 055
  5. AZITHROMYCIN [Concomitant]
     Active Substance: AZITHROMYCIN ANHYDROUS
     Indication: CYSTIC FIBROSIS
     Dosage: 1 DF (THREE TIMES PER WEEK)
     Route: 065
  6. PULMOZYME [Concomitant]
     Active Substance: DORNASE ALFA
     Indication: CYSTIC FIBROSIS
     Dosage: 1 DF, QD (I NEBULIZATION DAILY)
     Route: 055
  7. VITAMIN A [Concomitant]
     Active Substance: VITAMIN A
     Indication: HYPOVITAMINOSIS
     Dosage: 1 DF, QD (ONE CAPSULE DAILY)
     Route: 065
  8. VITAMIN E [Concomitant]
     Active Substance: .ALPHA.-TOCOPHEROL
     Indication: HYPOVITAMINOSIS
     Dosage: 1 DF, QD (1 CAPSULE DAILY)
     Route: 065
  9. ALENIA [Concomitant]
     Active Substance: BUDESONIDE\FORMOTEROL FUMARATE
     Indication: PRODUCT USED FOR UNKNOWN INDICATION
     Dosage: UNK
     Route: 065
  10. ZOTEON PODHALER [Suspect]
     Active Substance: TOBRAMYCIN
     Dosage: UNK

REACTIONS (2)
  - Malaise [Unknown]
  - Lower respiratory tract infection bacterial [Recovering/Resolving]

NARRATIVE: CASE EVENT DATE: 201404
